FAERS Safety Report 15535613 (Version 1)
Quarter: 2018Q4

REPORT INFORMATION
  Report Type: Spontaneous
  Country: US (occurrence: US)
  Receive Date: 20181022
  Receipt Date: 20181022
  Transmission Date: 20190205
  Serious: No
  Sender: FDA-Public Use
  Company Number: US-PFIZER INC-2018426298

PATIENT
  Sex: Male

DRUGS (1)
  1. LYRICA [Suspect]
     Active Substance: PREGABALIN
     Dosage: 225 MG, 3X/DAY(1 EVERY 8 HOURS)

REACTIONS (4)
  - Insomnia [Unknown]
  - Overdose [Unknown]
  - Paraesthesia [Unknown]
  - Pain [Unknown]
